FAERS Safety Report 4358652-0 (Version None)
Quarter: 2004Q2

REPORT INFORMATION
  Report Type: 
  Country: None (occurrence: None)
  Receive Date: 20040511
  Receipt Date: 20040501
  Transmission Date: 20050107
  Serious: No
  Sender: FDA-Public Use
  Company Number: 2004UW09003

PATIENT

DRUGS (2)
  1. CRESTOR [Suspect]
  2. TRICOR [Suspect]

REACTIONS (1)
  - STEVENS-JOHNSON SYNDROME [None]
